FAERS Safety Report 24817883 (Version 1)
Quarter: 2025Q1

REPORT INFORMATION
  Report Type: Spontaneous
  Country: JP (occurrence: JP)
  Receive Date: 20250108
  Receipt Date: 20250108
  Transmission Date: 20250408
  Serious: Yes (Hospitalization, Other)
  Sender: IPCA
  Company Number: JP-IPCA LABORATORIES LIMITED-IPC-2024-JP-003107

PATIENT

DRUGS (3)
  1. QUETIAPINE [Suspect]
     Active Substance: QUETIAPINE
     Indication: Product used for unknown indication
     Route: 048
  2. TRAZODONE [Suspect]
     Active Substance: TRAZODONE HYDROCHLORIDE
     Indication: Product used for unknown indication
     Route: 048
  3. LEVOMEPROMAZINE [Suspect]
     Active Substance: LEVOMEPROMAZINE
     Indication: Product used for unknown indication
     Route: 048

REACTIONS (7)
  - Altered state of consciousness [Unknown]
  - Hypoxia [Unknown]
  - Electrocardiogram QRS complex prolonged [Unknown]
  - Mental status changes [Unknown]
  - Hypotension [Unknown]
  - Toxicity to various agents [Unknown]
  - Overdose [Unknown]
